FAERS Safety Report 4877261-8 (Version None)
Quarter: 2006Q1

REPORT INFORMATION
  Report Type: 
  Country: None (occurrence: None)
  Receive Date: 20060111
  Receipt Date: 20060105
  Transmission Date: 20060701
  Serious: Yes (Hospitalization)
  Sender: FDA-Public Use
  Company Number: 2006CG00035

PATIENT
  Age: 72 Year
  Sex: Female
  Weight: 80 kg

DRUGS (5)
  1. HYTACAND [Suspect]
     Indication: ESSENTIAL HYPERTENSION
     Route: 048
     Dates: end: 20050904
  2. CARTREX [Suspect]
     Indication: OSTEOARTHRITIS
     Route: 048
     Dates: start: 20050902, end: 20050904
  3. OMEPRAZOLE [Concomitant]
  4. TAHOR [Concomitant]
     Indication: DYSLIPIDAEMIA
     Route: 048
  5. MEDIATENSYL [Concomitant]
     Indication: ESSENTIAL HYPERTENSION
     Route: 048

REACTIONS (1)
  - GENERALISED OEDEMA [None]
